FAERS Safety Report 5723417-1 (Version None)
Quarter: 2008Q2

REPORT INFORMATION
  Report Type: 
  Country: None (occurrence: None)
  Receive Date: 20080429
  Receipt Date: 20080109
  Transmission Date: 20081010
  Serious: Yes (Other)
  Sender: FDA-Public Use
  Company Number: NARC20080001

PATIENT
  Sex: Female

DRUGS (2)
  1. NARCAN [Suspect]
     Dates: start: 20071101, end: 20071101
  2. MAXALT [Suspect]

REACTIONS (2)
  - DRUG INTERACTION [None]
  - ELECTROCARDIOGRAM T WAVE INVERSION [None]
